FAERS Safety Report 12726281 (Version 2)
Quarter: 2017Q1

REPORT INFORMATION
  Report Type: Not Available
  Country: BR (occurrence: BR)
  Receive Date: 20160908
  Receipt Date: 20170307
  Transmission Date: 20170428
  Serious: Yes (Hospitalization)
  Sender: FDA-Public Use
  Company Number: BR-AKORN-38702

PATIENT
  Age: 70 Year
  Sex: Female
  Weight: 45 kg

DRUGS (1)
  1. COSOPT [Suspect]
     Active Substance: DORZOLAMIDE HYDROCHLORIDE\TIMOLOL MALEATE

REACTIONS (18)
  - Ocular hyperaemia [Recovered/Resolved]
  - Exophthalmos [Recovered/Resolved]
  - Glaucoma [Unknown]
  - Intraocular pressure increased [Recovered/Resolved]
  - Eye pruritus [Recovered/Resolved]
  - Feeling abnormal [Recovered/Resolved]
  - Skin odour abnormal [Unknown]
  - Hepatic failure [Unknown]
  - Renal failure [Recovered/Resolved]
  - Breast mass [None]
  - Vision blurred [Recovered/Resolved]
  - Drug ineffective [Unknown]
  - Eye irritation [Recovered/Resolved]
  - Foreign body in eye [Unknown]
  - Glaucoma [Unknown]
  - Breast cancer [Unknown]
  - Eye pain [Recovered/Resolved]
  - Gastrointestinal disorder [Recovered/Resolved]

NARRATIVE: CASE EVENT DATE: 20161205
